FAERS Safety Report 9095998 (Version 1)
Quarter: 2013Q1

REPORT INFORMATION
  Report Type: Spontaneous
  Country: US (occurrence: US)
  Receive Date: 20130207
  Receipt Date: 20130207
  Transmission Date: 20140127
  Serious: Yes (Hospitalization)
  Sender: FDA-Public Use
  Company Number: US-AMGEN-USASP2013006903

PATIENT
  Age: 47 Year
  Sex: Female

DRUGS (2)
  1. ENBREL [Suspect]
     Indication: RHEUMATOID ARTHRITIS
     Dosage: 50 MG, QWK
     Dates: start: 20020415
  2. METHOTREXATE [Concomitant]
     Dosage: 15 MG, QWK

REACTIONS (3)
  - Knee arthroplasty [Recovered/Resolved]
  - Shoulder arthroplasty [Recovered/Resolved]
  - Arthropathy [Recovered/Resolved]
